FAERS Safety Report 12595050 (Version 1)
Quarter: 2016Q3

REPORT INFORMATION
  Report Type: Spontaneous
  Country: US (occurrence: US)
  Receive Date: 20160726
  Receipt Date: 20160726
  Transmission Date: 20161109
  Serious: No
  Sender: FDA-Public Use
  Company Number: US-UNITED THERAPEUTICS-UNT-2015-014554

PATIENT
  Age: 30 Year
  Sex: Female
  Weight: 74.83 kg

DRUGS (8)
  1. REMODULIN [Suspect]
     Active Substance: TREPROSTINIL
     Dosage: 0.090 ?G/KG/MIN, CONTINUING
     Route: 041
  2. CIALIS [Concomitant]
     Active Substance: TADALAFIL
     Indication: PRODUCT USED FOR UNKNOWN INDICATION
  3. COUMADIN [Concomitant]
     Active Substance: WARFARIN SODIUM
     Indication: PRODUCT USED FOR UNKNOWN INDICATION
  4. REMODULIN [Suspect]
     Active Substance: TREPROSTINIL
     Dosage: 0.080 ?G/KG/MIN, CONTINUING
     Route: 041
     Dates: start: 20151204
  5. LETAIRIS [Concomitant]
     Active Substance: AMBRISENTAN
     Indication: PRODUCT USED FOR UNKNOWN INDICATION
     Route: 065
  6. REVATIO [Concomitant]
     Active Substance: SILDENAFIL CITRATE
     Indication: PRODUCT USED FOR UNKNOWN INDICATION
     Route: 065
  7. REMODULIN [Suspect]
     Active Substance: TREPROSTINIL
     Indication: PULMONARY ARTERIAL HYPERTENSION
     Dosage: 0.092 ?G/KG/MIN, CONTINUING
     Route: 058
     Dates: start: 20130207
  8. REMODULIN [Suspect]
     Active Substance: TREPROSTINIL
     Dosage: 0.092 ?G/KG/MIN, CONTINUING
     Route: 041
     Dates: start: 20130207

REACTIONS (7)
  - Infusion site infection [Not Recovered/Not Resolved]
  - Device allergy [Unknown]
  - Infusion site irritation [Unknown]
  - Injection site vesicles [Unknown]
  - Injection site discharge [Not Recovered/Not Resolved]
  - Infusion site discharge [Not Recovered/Not Resolved]
  - Device dislocation [Unknown]

NARRATIVE: CASE EVENT DATE: 201511
